FAERS Safety Report 7084874 (Version 5)
Quarter: 2015Q1

REPORT INFORMATION
  Report Type: Report from Study
  Country: JP (occurrence: JP)
  Receive Date: 20090818
  Receipt Date: 20150123
  Transmission Date: 20150721
  Serious: Yes (Death)
  Sender: FDA-Public Use
  Company Number: PHHO2009JP08629

PATIENT
  Age: 72 Year
  Sex: Male
  Weight: 55 kg

DRUGS (13)
  1. NEUROTROPIN [Suspect]
     Active Substance: NEUROTROPIN
     Indication: LUMBAR SPINAL STENOSIS
     Dosage: 12 DF, UNK
     Route: 048
  2. METHYCOBAL [Suspect]
     Active Substance: METHYLCOBALAMIN
     Indication: LUMBAR SPINAL STENOSIS
     Dosage: 1500 UG, UNK
     Route: 048
  3. METFORMIN [Suspect]
     Active Substance: METFORMIN HYDROCHLORIDE
     Indication: DIABETES MELLITUS
     Dosage: 750 MG, UNK
     Route: 048
  4. AMLODIN [Suspect]
     Active Substance: AMLODIPINE BESYLATE
     Indication: HYPERTENSION
     Dosage: 2.5 MG, UNK
     Route: 048
  5. PURSENNID [Suspect]
     Active Substance: SENNOSIDES A AND B
     Indication: CONSTIPATION
     Dosage: 24 MG, UNK
     Route: 048
  6. PLACEBO [Suspect]
     Active Substance: UNSPECIFIED INGREDIENT
     Indication: CARDIOVASCULAR DISORDER
     Route: 048
     Dates: start: 20081027, end: 20090704
  7. ENALAPRIL MALEATE. [Suspect]
     Active Substance: ENALAPRIL MALEATE
     Indication: HYPERTENSION
     Dosage: 6 MG, UNK
     Route: 048
  8. IDOMETHINE [Suspect]
     Active Substance: INDOMETHACIN
     Indication: LUMBAR SPINAL STENOSIS
     Route: 062
  9. STARSIS [Suspect]
     Active Substance: NATEGLINIDE
     Indication: DIABETES MELLITUS
     Dosage: 270 MG, UNK
     Route: 048
  10. FLUITRAN [Suspect]
     Active Substance: TRICHLORMETHIAZIDE
     Indication: HYPERTENSION
     Dosage: 2 MG, UNK
     Route: 048
  11. OPALMON [Suspect]
     Active Substance: LIMAPROST
     Indication: LUMBAR SPINAL STENOSIS
     Dosage: 15 UG, UNK
     Route: 048
  12. KARY UNI [Suspect]
     Active Substance: PIRENOXINE
     Indication: CATARACT
     Dosage: 4 DF, UNK
     Route: 048
  13. PITAVASTATIN CALCIUM [Suspect]
     Active Substance: PITAVASTATIN CALCIUM
     Indication: HYPERLIPIDAEMIA
     Dosage: 1 MG, UNK
     Route: 048

REACTIONS (2)
  - Respiratory failure [Fatal]
  - Cardiac failure [Fatal]

NARRATIVE: CASE EVENT DATE: 20090705
